FAERS Safety Report 5148595-7 (Version None)
Quarter: 2006Q4

REPORT INFORMATION
  Report Type: 
  Country: None (occurrence: None)
  Receive Date: 20060918
  Receipt Date: 20060328
  Transmission Date: 20070319
  Serious: Yes (Other)
  Sender: FDA-Public Use
  Company Number: US-JNJFOC-20060302896

PATIENT
  Age: 51 Year
  Sex: Female
  Weight: 90.7194 kg

DRUGS (3)
  1. TOPAMAX [Suspect]
     Indication: CONVULSION
     Dosage: SEE IMAGE
     Route: 048
     Dates: start: 20040301
  2. LIPITOR [Concomitant]
  3. LASIX [Concomitant]

REACTIONS (2)
  - CONVULSION [None]
  - WEIGHT DECREASED [None]
